FAERS Safety Report 4870291-1 (Version None)
Quarter: 2005Q4

REPORT INFORMATION
  Report Type: 
  Country: None (occurrence: None)
  Receive Date: 20051228
  Receipt Date: 20051207
  Transmission Date: 20060501
  Serious: Yes (Congenital Anomaly)
  Sender: FDA-Public Use
  Company Number: GB200512001447

PATIENT
  Age: 1 Day
  Sex: Female

DRUGS (1)
  1. ZYPREXA [Suspect]

REACTIONS (2)
  - HAEMANGIOMA CONGENITAL [None]
  - TRANSMISSION OF DRUG VIA SEMEN [None]
